FAERS Safety Report 7021362-5 (Version None)
Quarter: 2010Q3

REPORT INFORMATION
  Report Type: 
  Country: None (occurrence: None)
  Receive Date: 20100929
  Receipt Date: 20100917
  Transmission Date: 20110219
  Serious: Yes (Other)
  Sender: FDA-Public Use
  Company Number: US-PFIZER INC-2010093480

PATIENT
  Sex: Female
  Weight: 81.63 kg

DRUGS (4)
  1. NEURONTIN [Suspect]
     Indication: MIGRAINE
     Dosage: 300 MG, DAILY
     Route: 048
     Dates: start: 20100715, end: 20100720
  2. AMITRIPTYLINE [Concomitant]
     Dosage: UNK
  3. PROPRANOLOL [Concomitant]
     Dosage: UNK
  4. ESTRADIOL [Concomitant]
     Dosage: UNK

REACTIONS (1)
  - HERPES ZOSTER [None]
